FAERS Safety Report 25262661 (Version 2)
Quarter: 2025Q2

REPORT INFORMATION
  Report Type: Report from Study
  Country: US (occurrence: US)
  Receive Date: 20250502
  Receipt Date: 20250516
  Transmission Date: 20250716
  Serious: No
  Sender: DECIPHERA PHARMACEUTICALS
  Company Number: US-DECIPHERA PHARMACEUTICALS LLC-2025US000401

PATIENT
  Age: 65 Year
  Sex: Female

DRUGS (1)
  1. QINLOCK [Suspect]
     Active Substance: RIPRETINIB
     Indication: Gastrointestinal stromal tumour
     Dosage: 150 MILLIGRAM, QD
     Route: 048
     Dates: start: 20250226, end: 20250425

REACTIONS (7)
  - Burning sensation [Unknown]
  - Hypoaesthesia [Unknown]
  - Miliaria [Unknown]
  - Dysphonia [Unknown]
  - Nasopharyngitis [Unknown]
  - Herpes zoster [Unknown]
  - Hypertension [Unknown]

NARRATIVE: CASE EVENT DATE: 20250101
